FAERS Safety Report 6905051-0 (Version None)
Quarter: 2010Q3

REPORT INFORMATION
  Report Type: 
  Country: None (occurrence: None)
  Receive Date: 20100804
  Receipt Date: 20090909
  Transmission Date: 20110219
  Serious: No
  Sender: FDA-Public Use
  Company Number: US-PFIZER INC-2009244287

PATIENT
  Sex: Female
  Weight: 113.38 kg

DRUGS (2)
  1. LYRICA [Suspect]
     Indication: FIBROMYALGIA
     Dosage: 75 MG, 2X/DAY
     Dates: start: 20070101, end: 20090701
  2. HYDROCHLOROTHIAZIDE [Concomitant]

REACTIONS (3)
  - MOBILITY DECREASED [None]
  - PAIN [None]
  - WEIGHT INCREASED [None]
